FAERS Safety Report 7082681-X (Version None)
Quarter: 2010Q4

REPORT INFORMATION
  Report Type: 
  Country: None (occurrence: None)
  Receive Date: 20101104
  Receipt Date: 20101101
  Transmission Date: 20110411
  Serious: Yes (Other)
  Sender: FDA-Public Use
  Company Number: US-WYE-H18496610

PATIENT
  Sex: Female

DRUGS (3)
  1. PRISTIQ [Suspect]
     Dosage: UNKNOWN
     Dates: start: 20090101
  2. MAXALT [Interacting]
     Indication: MIGRAINE
     Dosage: UNKNOWN
  3. MAXALT [Interacting]
     Indication: CLUSTER HEADACHE

REACTIONS (9)
  - CONFUSIONAL STATE [None]
  - DISORIENTATION [None]
  - DRUG INTERACTION [None]
  - MALAISE [None]
  - MEMORY IMPAIRMENT [None]
  - NAUSEA [None]
  - NONSPECIFIC REACTION [None]
  - VISION BLURRED [None]
  - VOMITING [None]
